FAERS Safety Report 4275327-7 (Version None)
Quarter: 2004Q1

REPORT INFORMATION
  Report Type: 
  Country: None (occurrence: None)
  Receive Date: 20040116
  Receipt Date: 20040109
  Transmission Date: 20041129
  Serious: Yes (Death)
  Sender: FDA-Public Use
  Company Number: US-JNJFOC-20040101706

PATIENT
  Age: 60 Year
  Sex: Male

DRUGS (1)
  1. DURAGESIC [Suspect]
     Indication: CANCER PAIN
     Dosage: 100 UG/HR, 1 IN 72 HOURS, TRANSDERMAL
     Route: 062
     Dates: start: 20030701, end: 20031017

REACTIONS (1)
  - DEATH [None]
